FAERS Safety Report 8836691 (Version 2)
Quarter: 2012Q4

REPORT INFORMATION
  Report Type: Spontaneous
  Country: IT (occurrence: None)
  Receive Date: 20121010
  Receipt Date: 20121022
  Transmission Date: 20130627
  Serious: No
  Sender: FDA-Public Use
  Company Number: 2012AP003219

PATIENT
  Age: 66 Year
  Sex: Female

DRUGS (1)
  1. PANTOPRAZOLE [Suspect]
     Indication: GASTROOESOPHAGEAL REFLUX DISEASE
     Dosage: 1 DF, QD, PO
     Route: 048
     Dates: start: 20120827, end: 20120912

REACTIONS (3)
  - Muscle spasms [None]
  - Dry mouth [None]
  - Pruritus generalised [None]
